FAERS Safety Report 10448087 (Version 1)
Quarter: 2014Q3

REPORT INFORMATION
  Report Type: Spontaneous
  Country: US (occurrence: US)
  Receive Date: 20140911
  Receipt Date: 20140911
  Transmission Date: 20150326
  Serious: Yes (Death, Hospitalization, Congenital Anomaly, Other)
  Sender: FDA-Public Use
  Company Number: US-PFIZER INC-2014249989

PATIENT
  Sex: Female

DRUGS (1)
  1. SERTRALINE HCL [Suspect]
     Active Substance: SERTRALINE HYDROCHLORIDE
     Indication: DEPRESSION
     Dosage: UNK
     Route: 064

REACTIONS (13)
  - Ventricular septal defect [Fatal]
  - Congenital coronary artery malformation [Fatal]
  - Use of accessory respiratory muscles [Unknown]
  - Aorta hypoplasia [Fatal]
  - Atrial septal defect [Fatal]
  - Premature baby [Unknown]
  - Maternal exposure during pregnancy [Fatal]
  - Cardiac murmur [Fatal]
  - Coarctation of the aorta [Fatal]
  - Oxygen saturation decreased [Unknown]
  - Respiratory distress [Unknown]
  - Transposition of the great vessels [Fatal]
  - Patent ductus arteriosus [Fatal]

NARRATIVE: CASE EVENT DATE: 20120902
